FAERS Safety Report 4471747-6 (Version None)
Quarter: 2004Q4

REPORT INFORMATION
  Report Type: 
  Country: None (occurrence: None)
  Receive Date: 20041006
  Receipt Date: 20040920
  Transmission Date: 20050328
  Serious: Yes (Life-Threatening, Other)
  Sender: FDA-Public Use
  Company Number: 2004234159JP

PATIENT
  Age: 56 Year
  Sex: Female

DRUGS (2)
  1. IDAMYCIN [Suspect]
     Indication: ACUTE MYELOID LEUKAEMIA
     Dosage: 20 MG,  CYCLE 1 (2 DAYS), IV
     Route: 042
  2. ALEXAN (CYTARABINE) SOLUTION, STERILE [Suspect]
     Indication: ACUTE MYELOID LEUKAEMIA
     Dosage: 180 MG, CYCLE 1 (2 DAYS), IV
     Route: 042

REACTIONS (5)
  - BONE MARROW DEPRESSION [None]
  - HEPATIC ENCEPHALOPATHY [None]
  - HEPATIC NECROSIS [None]
  - HEPATITIS FULMINANT [None]
  - VENOOCCLUSIVE LIVER DISEASE [None]
